FAERS Safety Report 21521184 (Version 2)
Quarter: 2022Q4

REPORT INFORMATION
  Report Type: Report from Study
  Country: CR (occurrence: CR)
  Receive Date: 20221028
  Receipt Date: 20221114
  Transmission Date: 20230113
  Serious: Yes (Hospitalization, Other)
  Sender: FDA-Public Use
  Company Number: CR-NOVARTISPH-NVSC2022CR242855

PATIENT
  Sex: Female

DRUGS (2)
  1. HYDROCHLOROTHIAZIDE\VALSARTAN [Suspect]
     Active Substance: HYDROCHLOROTHIAZIDE\VALSARTAN
     Indication: Hypertension
     Dosage: 320/12.5 MG, QD, BY MOUTH
     Route: 048
     Dates: start: 2012, end: 2020
  2. EXFORGE HCT [Suspect]
     Active Substance: AMLODIPINE BESYLATE\HYDROCHLOROTHIAZIDE\VALSARTAN
     Indication: Hypertension
     Dosage: 5/160/25 MG, QD, BY MOUTH
     Route: 048
     Dates: start: 2020

REACTIONS (5)
  - Cataract [Unknown]
  - Hypothyroidism [Not Recovered/Not Resolved]
  - Blood pressure increased [Recovered/Resolved]
  - Osteoporosis [Not Recovered/Not Resolved]
  - Drug ineffective [Recovered/Resolved]

NARRATIVE: CASE EVENT DATE: 20200101
